FAERS Safety Report 22161343 (Version 1)
Quarter: 2023Q1

REPORT INFORMATION
  Report Type: Report from Study
  Country: US (occurrence: None)
  Receive Date: 20230331
  Receipt Date: 20230331
  Transmission Date: 20230417
  Serious: Yes (Hospitalization)
  Sender: FDA-Public Use
  Company Number: US-Eisai Medical Research-EC-2023-135161

PATIENT
  Age: 64 Year
  Sex: Female

DRUGS (1)
  1. LENVIMA [Suspect]
     Active Substance: LENVATINIB
     Indication: Endometrial cancer
     Route: 048
     Dates: start: 20230217, end: 20230319

REACTIONS (9)
  - Gastrointestinal inflammation [Unknown]
  - Vomiting [Unknown]
  - Diarrhoea [Unknown]
  - Abdominal pain upper [Unknown]
  - Tongue discomfort [Unknown]
  - Throat irritation [Unknown]
  - Nausea [Unknown]
  - Blood pressure increased [Unknown]
  - Ageusia [Unknown]

NARRATIVE: CASE EVENT DATE: 20230101
